FAERS Safety Report 25657496 (Version 1)
Quarter: 2025Q3

REPORT INFORMATION
  Report Type: Spontaneous
  Country: GB (occurrence: GB)
  Receive Date: 20250808
  Receipt Date: 20250808
  Transmission Date: 20251020
  Serious: Yes (Hospitalization, Other)
  Sender: HIKMA
  Company Number: GB-MLMSERVICE-20250718-PI582356-00165-1

PATIENT
  Age: 8 Decade
  Sex: Male

DRUGS (8)
  1. ABRAXANE [Suspect]
     Active Substance: PACLITAXEL
     Indication: Adenocarcinoma pancreas
     Route: 065
  2. ABRAXANE [Suspect]
     Active Substance: PACLITAXEL
     Indication: Metastases to kidney
  3. ABRAXANE [Suspect]
     Active Substance: PACLITAXEL
     Indication: Splenic infarction
  4. AMITRIPTYLINE [Suspect]
     Active Substance: AMITRIPTYLINE
     Indication: Product used for unknown indication
     Route: 065
  5. GEMCITABINE [Suspect]
     Active Substance: GEMCITABINE
     Indication: Adenocarcinoma pancreas
     Route: 065
  6. GEMCITABINE [Suspect]
     Active Substance: GEMCITABINE
     Indication: Metastases to kidney
  7. GEMCITABINE [Suspect]
     Active Substance: GEMCITABINE
     Indication: Splenic infarction
  8. TAMSULOSIN [Suspect]
     Active Substance: TAMSULOSIN
     Indication: Product used for unknown indication
     Route: 065

REACTIONS (3)
  - Orthostatic hypotension [Unknown]
  - Syncope [Unknown]
  - Fall [Unknown]
